FAERS Safety Report 6648597-5 (Version None)
Quarter: 2010Q1

REPORT INFORMATION
  Report Type: 
  Country: None (occurrence: None)
  Receive Date: 20100319
  Receipt Date: 20100309
  Transmission Date: 20100710
  Serious: Yes (Hospitalization)
  Sender: FDA-Public Use
  Company Number: 230088J10USA

PATIENT
  Age: 29 Year
  Sex: Male
  Weight: 88 kg

DRUGS (3)
  1. REBIF [Suspect]
     Indication: MULTIPLE SCLEROSIS
     Dosage: 44 MCG, 3 IN 1 WEEKS, SUBCUTANEOUS, 44, 3 IN 1 WEEKS, SUBCUTANEOUS
     Route: 058
     Dates: start: 20090501, end: 20091201
  2. REBIF [Suspect]
     Indication: MULTIPLE SCLEROSIS
     Dosage: 44 MCG, 3 IN 1 WEEKS, SUBCUTANEOUS, 44, 3 IN 1 WEEKS, SUBCUTANEOUS
     Route: 058
     Dates: end: 20100101
  3. PREDNISONE TAB [Suspect]
     Indication: URTICARIA
     Dosage: ORAL
     Route: 048
     Dates: start: 20090101, end: 20090101

REACTIONS (8)
  - ARTHRALGIA [None]
  - DEPRESSION [None]
  - DRUG DOSE OMISSION [None]
  - JOINT CREPITATION [None]
  - MOOD ALTERED [None]
  - OSTEONECROSIS [None]
  - STRESS [None]
  - URTICARIA [None]
